FAERS Safety Report 25682667 (Version 1)
Quarter: 2025Q3

REPORT INFORMATION
  Report Type: Report from Study
  Country: CN (occurrence: CN)
  Receive Date: 20250814
  Receipt Date: 20250814
  Transmission Date: 20251020
  Serious: Yes (Hospitalization)
  Sender: SANDOZ
  Company Number: CN-002147023-NVSC2020CN361925

PATIENT
  Age: 64 Year
  Sex: Male
  Weight: 52 kg

DRUGS (8)
  1. CAPECITABINE [Suspect]
     Active Substance: CAPECITABINE
     Dosage: 1000 MG AM 1500 MG PM D1-14
     Route: 048
     Dates: start: 20200708
  2. CAPECITABINE [Suspect]
     Active Substance: CAPECITABINE
     Indication: Gastric cancer
     Dosage: 1500 MG AM 2000 MG PM D1-14
     Route: 048
     Dates: start: 20200615, end: 20200624
  3. OXALIPLATIN [Suspect]
     Active Substance: OXALIPLATIN
     Indication: Gastric cancer
     Dosage: 222.3 MILLIGRAM, D1, Q3WK
     Route: 042
     Dates: start: 20200615
  4. BICYCLOL [Concomitant]
     Active Substance: BICYCLOL
     Indication: Prophylaxis
     Dosage: 50 MILLIGRAM, QD
     Route: 048
     Dates: start: 20200624
  5. BICYCLOL [Concomitant]
     Active Substance: BICYCLOL
     Indication: Aspartate aminotransferase increased
  6. OMEPRAZOLE [Concomitant]
     Active Substance: OMEPRAZOLE
     Indication: Prophylaxis
     Dosage: 20 MILLIGRAM, QD
     Route: 048
  7. URSODIOL [Concomitant]
     Active Substance: URSODIOL
     Indication: Prophylaxis
     Dosage: 0.25 GRAM, QD
     Route: 048
     Dates: start: 20200624
  8. URSODIOL [Concomitant]
     Active Substance: URSODIOL
     Indication: Blood bilirubin increased

REACTIONS (2)
  - Vomiting [Not Recovered/Not Resolved]
  - Vomiting [Recovered/Resolved]

NARRATIVE: CASE EVENT DATE: 20200629
